FAERS Safety Report 7405195-3 (Version None)
Quarter: 2011Q2

REPORT INFORMATION
  Report Type: 
  Country: None (occurrence: None)
  Receive Date: 20110411
  Receipt Date: 20110330
  Transmission Date: 20111010
  Serious: Yes (Other)
  Sender: FDA-Public Use
  Company Number: GB-TEVA-274853ISR

PATIENT
  Age: 82 Year
  Sex: Male

DRUGS (1)
  1. WARFARIN [Suspect]
     Indication: ATRIAL FIBRILLATION
     Dosage: 5 MILLIGRAM;
     Route: 048
     Dates: start: 20110101

REACTIONS (1)
  - HYPOGLYCAEMIA [None]
